FAERS Safety Report 14180851 (Version 2)
Quarter: 2017Q4

REPORT INFORMATION
  Report Type: Spontaneous
  Country: US (occurrence: US)
  Receive Date: 20171110
  Receipt Date: 20171201
  Transmission Date: 20180321
  Serious: No
  Sender: FDA-Public Use
  Company Number: US-ACTELION-A-US2017-162300

PATIENT
  Age: 50 Year
  Sex: Female
  Weight: 68.27 kg

DRUGS (3)
  1. ADCIRCA [Concomitant]
     Active Substance: TADALAFIL
  2. TYVASO [Concomitant]
     Active Substance: TREPROSTINIL
  3. OPSUMIT [Suspect]
     Active Substance: MACITENTAN
     Indication: PULMONARY HYPERTENSION
     Dosage: 10 MG, QD
     Route: 048
     Dates: end: 20171121

REACTIONS (5)
  - Fat tissue increased [Unknown]
  - Weight increased [Unknown]
  - Therapy non-responder [Unknown]
  - Menopausal symptoms [Unknown]
  - Insomnia [Unknown]
